FAERS Safety Report 9689369 (Version 1)
Quarter: 2013Q4

REPORT INFORMATION
  Report Type: Spontaneous
  Country: US (occurrence: US)
  Receive Date: 20131114
  Receipt Date: 20131114
  Transmission Date: 20140711
  Serious: Yes (Hospitalization, Other)
  Sender: FDA-Public Use
  Company Number: US-B.I. PHARMACEUTICALS,INC./RIDGEFIELD-2013-BI-36974BP

PATIENT
  Age: 60 Year
  Sex: Female
  Weight: 50 kg

DRUGS (6)
  1. SPIRIVA [Suspect]
     Indication: CHRONIC OBSTRUCTIVE PULMONARY DISEASE
     Dosage: 18 MCG
     Route: 055
     Dates: start: 2005
  2. KLONOPIN [Concomitant]
     Dosage: 4 MG
     Route: 048
  3. ASPIRIN [Concomitant]
     Dosage: 81 MG
     Route: 048
  4. ACCUPRIL [Concomitant]
     Indication: HYPERTENSION
     Dosage: 10 MG
     Route: 048
  5. LIPITOR [Concomitant]
     Indication: BLOOD CHOLESTEROL INCREASED
     Dosage: 20 MG
     Route: 048
  6. VITAMINS [Concomitant]
     Route: 048

REACTIONS (1)
  - Lung neoplasm malignant [Recovered/Resolved]
